FAERS Safety Report 5234381-6 (Version None)
Quarter: 2007Q1

REPORT INFORMATION
  Report Type: 
  Country: None (occurrence: None)
  Receive Date: 20070209
  Receipt Date: 20070130
  Transmission Date: 20070707
  Serious: Yes (Other)
  Sender: FDA-Public Use
  Company Number: FR-ROCHE-477640

PATIENT
  Age: 49 Year
  Sex: Male
  Weight: 70 kg

DRUGS (6)
  1. COPEGUS [Suspect]
     Dosage: 5 TABLETS A DAY.
     Route: 048
     Dates: start: 20061228, end: 20070105
  2. REYATAZ [Suspect]
     Dosage: REPORTED DOSING REGIMEN: 2 DOSES DAILY.
     Route: 048
     Dates: start: 20040615
  3. PEGASYS [Concomitant]
     Dosage: FORM REPORTED AS: INJECTABLE SOLUTION. PATIENT RECEIVED ONLY ONE INJECTION OF PEG-INTERFERON ALFA-2+
     Route: 058
     Dates: start: 20061228, end: 20070104
  4. COMBIVIR [Concomitant]
     Dosage: REPORTED DOSING REGIMEN: 2 DOSES DAILY.
     Route: 048
     Dates: start: 20000615
  5. NORVIR [Concomitant]
     Dosage: REPORTED DOSING REGIMEN:1 DOSE DAILY.
     Route: 048
     Dates: start: 20040615
  6. SUBUTEX [Concomitant]
     Dosage: INDICATION FOR USE REPORTED AS: SUBSTITUTION.
     Route: 048
     Dates: start: 20000615

REACTIONS (1)
  - JAUNDICE ACHOLURIC [None]
